FAERS Safety Report 10378189 (Version 1)
Quarter: 2014Q3

REPORT INFORMATION
  Report Type: Spontaneous
  Country: IN (occurrence: None)
  Receive Date: 20140807
  Receipt Date: 20140807
  Transmission Date: 20150326
  Serious: Yes (Disabling, Other)
  Sender: FDA-Public Use
  Company Number: DEP_02228_2014

PATIENT
  Age: 56 Year
  Sex: Male

DRUGS (1)
  1. DICLOFENAC [Suspect]
     Active Substance: DICLOFENAC
     Indication: ABDOMINAL PAIN
     Dosage: (DF INTRAMUSCULAR)
     Route: 030

REACTIONS (5)
  - Gangrene [None]
  - Arm amputation [None]
  - Incorrect route of drug administration [None]
  - Arterial occlusive disease [None]
  - Injection site reaction [None]
